FAERS Safety Report 10085626 (Version 2)
Quarter: 2014Q2

REPORT INFORMATION
  Report Type: Spontaneous
  Country: FR (occurrence: FR)
  Receive Date: 20140418
  Receipt Date: 20140421
  Transmission Date: 20141212
  Serious: Yes (Hospitalization, Other)
  Sender: FDA-Public Use
  Company Number: FR-JNJFOC-20140408009

PATIENT
  Sex: Female

DRUGS (7)
  1. INTELENCE [Suspect]
     Indication: HIV TEST POSITIVE
     Route: 048
     Dates: start: 2011, end: 20140311
  2. KIVEXA [Suspect]
     Indication: HIV TEST POSITIVE
     Route: 048
     Dates: start: 2010
  3. TIVICAY [Suspect]
     Indication: HIV TEST POSITIVE
     Route: 048
     Dates: start: 20140311, end: 20140319
  4. CLAMOXYL [Suspect]
     Indication: PRODUCT USED FOR UNKNOWN INDICATION
     Route: 048
     Dates: start: 20140305, end: 20140310
  5. COAPROVEL [Concomitant]
     Indication: HYPERTENSION
     Route: 048
     Dates: start: 2010, end: 20140319
  6. ZELITREX [Concomitant]
     Route: 048
     Dates: start: 2010
  7. FLANID [Concomitant]
     Route: 048
     Dates: start: 20140314, end: 20140316

REACTIONS (1)
  - Leukopenia [Unknown]
